FAERS Safety Report 18556104 (Version 2)
Quarter: 2021Q1

REPORT INFORMATION
  Report Type: Spontaneous
  Country: JP (occurrence: JP)
  Receive Date: 20201127
  Receipt Date: 20210316
  Transmission Date: 20210419
  Serious: Yes (Other)
  Sender: FDA-Public Use
  Company Number: JP-AMGEN-JPNSP2020193661

PATIENT
  Age: 74 Year
  Sex: Male

DRUGS (3)
  1. JEVTANA [Concomitant]
     Active Substance: CABAZITAXEL
     Indication: HORMONE-REFRACTORY PROSTATE CANCER
     Dosage: UNK
     Route: 042
  2. G?LASTA [Suspect]
     Active Substance: PEGFILGRASTIM
     Indication: HORMONE-REFRACTORY PROSTATE CANCER
     Dosage: UNK
     Route: 058
  3. G?LASTA [Suspect]
     Active Substance: PEGFILGRASTIM
     Indication: COLONY STIMULATING FACTOR THERAPY

REACTIONS (2)
  - Drug ineffective [Unknown]
  - Febrile neutropenia [Unknown]
